FAERS Safety Report 22372531 (Version 1)
Quarter: 2023Q2

REPORT INFORMATION
  Report Type: Spontaneous
  Country: TH (occurrence: TH)
  Receive Date: 20230526
  Receipt Date: 20230526
  Transmission Date: 20230721
  Serious: Yes (Death, Hospitalization, Other)
  Sender: FDA-Public Use
  Company Number: TH-SUN PHARMACEUTICAL INDUSTRIES LTD-2023R1-389178

PATIENT
  Age: 51 Year
  Sex: Male

DRUGS (3)
  1. PREDNISONE [Suspect]
     Active Substance: PREDNISONE
     Indication: Immunosuppression
     Dosage: 10 MILLIGRAM, DAILY
     Route: 065
  2. TACROLIMUS [Suspect]
     Active Substance: TACROLIMUS
     Indication: Immunosuppression
     Dosage: UNK
     Route: 065
  3. SIROLIMUS [Suspect]
     Active Substance: SIROLIMUS
     Indication: Immunosuppression
     Dosage: UNK
     Route: 065

REACTIONS (9)
  - Polyomavirus-associated nephropathy [Fatal]
  - Septic shock [Fatal]
  - Enterococcal infection [Fatal]
  - Acute respiratory failure [Fatal]
  - Graft versus host disease [Fatal]
  - Cytomegalovirus viraemia [Fatal]
  - Pneumonia viral [Fatal]
  - Ischaemic stroke [Fatal]
  - Acute kidney injury [Fatal]
